FAERS Safety Report 6249483-5 (Version None)
Quarter: 2009Q2

REPORT INFORMATION
  Report Type: 
  Country: None (occurrence: None)
  Receive Date: 20090629
  Receipt Date: 20090622
  Transmission Date: 20091009
  Serious: Yes (Hospitalization)
  Sender: FDA-Public Use
  Company Number: B0527601A

PATIENT
  Sex: Male
  Weight: 92 kg

DRUGS (5)
  1. SALMETEROL [Suspect]
     Indication: CHRONIC OBSTRUCTIVE PULMONARY DISEASE
     Dosage: 1PUFF TWICE PER DAY
     Route: 055
     Dates: start: 20080422
  2. FLUTICASONE [Suspect]
     Indication: CHRONIC OBSTRUCTIVE PULMONARY DISEASE
     Dosage: 1PUFF TWICE PER DAY
     Route: 055
     Dates: start: 20080422
  3. CORDANUM [Concomitant]
     Indication: HYPERTENSION
     Dosage: 100MG FOUR TIMES PER DAY
     Route: 048
     Dates: start: 19980701
  4. LISINOPRIL [Concomitant]
     Indication: HYPERTENSION
     Dosage: 10MG FOUR TIMES PER DAY
     Route: 048
     Dates: start: 19980701
  5. BERODUAL DA [Concomitant]
     Indication: CHRONIC OBSTRUCTIVE PULMONARY DISEASE
     Dates: start: 20060808

REACTIONS (6)
  - ARRHYTHMIA [None]
  - BRONCHITIS CHRONIC [None]
  - CHRONIC OBSTRUCTIVE PULMONARY DISEASE [None]
  - CYANOSIS [None]
  - DYSPNOEA [None]
  - INFECTION [None]
